FAERS Safety Report 24567967 (Version 4)
Quarter: 2025Q1

REPORT INFORMATION
  Report Type: Report from Study
  Country: US (occurrence: US)
  Receive Date: 20241031
  Receipt Date: 20250211
  Transmission Date: 20250409
  Serious: Yes (Other)
  Sender: TAKEDA
  Company Number: US-TAKEDA-2024TUS109755

PATIENT
  Age: 68 Year
  Sex: Female
  Weight: 67 kg

DRUGS (23)
  1. HUMAN IMMUNOGLOBULIN G [Suspect]
     Active Substance: HUMAN IMMUNOGLOBULIN G
     Indication: Selective IgG subclass deficiency
     Dosage: 8 GRAM, 1/WEEK
     Dates: start: 20170615
  2. HUMAN IMMUNOGLOBULIN G [Suspect]
     Active Substance: HUMAN IMMUNOGLOBULIN G
     Dosage: 8 GRAM, 1/WEEK
     Dates: start: 20170620
  3. PLAVIX [Suspect]
     Active Substance: CLOPIDOGREL BISULFATE
     Indication: Product used for unknown indication
  4. DIPHENHYDRAMINE [Concomitant]
     Active Substance: DIPHENHYDRAMINE
     Indication: Product used for unknown indication
  5. CYANOCOBALAMIN [Concomitant]
     Active Substance: CYANOCOBALAMIN
     Indication: Product used for unknown indication
  6. EPINEPHRINE [Concomitant]
     Active Substance: EPINEPHRINE
     Indication: Product used for unknown indication
  7. QVAR [Concomitant]
     Active Substance: BECLOMETHASONE DIPROPIONATE
     Indication: Product used for unknown indication
  8. PROGESTERONE [Concomitant]
     Active Substance: PROGESTERONE
  9. SERTRALINE HYDROCHLORIDE [Concomitant]
     Active Substance: SERTRALINE HYDROCHLORIDE
  10. ACETAMINOPHEN [Concomitant]
     Active Substance: ACETAMINOPHEN
     Indication: Product used for unknown indication
  11. FAMOTIDINE [Concomitant]
     Active Substance: FAMOTIDINE
  12. CYTOMEL [Concomitant]
     Active Substance: LIOTHYRONINE SODIUM
     Indication: Product used for unknown indication
  13. HYDROXYZINE HYDROCHLORIDE [Concomitant]
     Active Substance: HYDROXYZINE HYDROCHLORIDE
     Indication: Product used for unknown indication
  14. ISOSORBIDE MONONITRATE [Concomitant]
     Active Substance: ISOSORBIDE MONONITRATE
  15. SYNTHROID [Concomitant]
     Active Substance: LEVOTHYROXINE SODIUM
     Indication: Product used for unknown indication
  16. LIDOCAINE [Concomitant]
     Active Substance: LIDOCAINE
     Indication: Product used for unknown indication
  17. TESSALON [Concomitant]
     Active Substance: BENZONATATE
     Indication: Product used for unknown indication
  18. DILTIAZEM [Concomitant]
     Active Substance: DILTIAZEM
     Indication: Product used for unknown indication
  19. CYCLOBENZAPRINE [Concomitant]
     Active Substance: CYCLOBENZAPRINE
     Indication: Product used for unknown indication
  20. MELATONIN [Concomitant]
     Active Substance: MELATONIN
     Indication: Product used for unknown indication
  21. LEVALBUTEROL [Concomitant]
     Active Substance: LEVALBUTEROL
     Indication: Product used for unknown indication
  22. PRASUGREL [Concomitant]
     Active Substance: PRASUGREL
  23. DIPHENHYDRAMINE HYDROCHLORIDE [Concomitant]
     Active Substance: DIPHENHYDRAMINE HYDROCHLORIDE

REACTIONS (31)
  - Coronary artery occlusion [Unknown]
  - Chest injury [Unknown]
  - Nasopharyngitis [Unknown]
  - Urinary tract infection [Unknown]
  - Oral discomfort [Unknown]
  - Cystitis [Unknown]
  - Polyp [Unknown]
  - Oropharyngeal discomfort [Unknown]
  - Upper respiratory tract infection [Unknown]
  - Gallbladder disorder [Unknown]
  - Gastrointestinal inflammation [Unknown]
  - Hyperchlorhydria [Unknown]
  - Depression [Unknown]
  - Weight decreased [Unknown]
  - COVID-19 [Unknown]
  - Seasonal allergy [Unknown]
  - Catheterisation cardiac [Unknown]
  - Gastrointestinal disorder [Unknown]
  - Food intolerance [Unknown]
  - Death of relative [Unknown]
  - Eating disorder [Unknown]
  - Secretion discharge [Unknown]
  - Sinusitis [Unknown]
  - Influenza [Unknown]
  - Asthma [Unknown]
  - Insomnia [Unknown]
  - Oropharyngeal pain [Recovered/Resolved]
  - Cough [Unknown]
  - Diarrhoea [Unknown]
  - Nausea [Unknown]
  - Pruritus [Unknown]

NARRATIVE: CASE EVENT DATE: 20200104
